FAERS Safety Report 4508257-3 (Version None)
Quarter: 2004Q4

REPORT INFORMATION
  Report Type: 
  Country: None (occurrence: None)
  Receive Date: 20041123
  Receipt Date: 20031205
  Transmission Date: 20050328
  Serious: No
  Sender: FDA-Public Use
  Company Number: US-GLAXOSMITHKLINE-A0442155A

PATIENT
  Age: 64 Year
  Sex: Female

DRUGS (8)
  1. WELLBUTRIN [Suspect]
     Indication: DEPRESSION
     Dosage: 100MG PER DAY
     Route: 048
     Dates: start: 20030801, end: 20031205
  2. DEPAKOTE [Concomitant]
  3. NEURONTIN [Concomitant]
  4. GEODON [Concomitant]
  5. PREVACID [Concomitant]
  6. ZOCOR [Concomitant]
  7. MOBIC [Concomitant]
  8. MIRALAX [Concomitant]

REACTIONS (1)
  - HYPERTENSION [None]
